FAERS Safety Report 13703285 (Version 3)
Quarter: 2017Q3

REPORT INFORMATION
  Report Type: Report from Study
  Country: US (occurrence: US)
  Receive Date: 20170629
  Receipt Date: 20170728
  Transmission Date: 20171127
  Serious: Yes (Other)
  Sender: FDA-Public Use
  Company Number: US-PFIZER INC-2017281886

PATIENT
  Age: 71 Year
  Sex: Female

DRUGS (45)
  1. LEVOTHYROXINE. [Concomitant]
     Active Substance: LEVOTHYROXINE
     Dosage: 1 DF DAILY AND 2 ON SUNDAY
     Dates: start: 20130925
  2. PAXIL [Concomitant]
     Active Substance: PAROXETINE HYDROCHLORIDE
     Indication: ANXIETY
     Dosage: 1 DF, 1X/DAY
     Dates: start: 20150816, end: 20150916
  3. HUMALOG MIX [Concomitant]
     Active Substance: INSULIN LISPRO
     Dosage: 25/20
     Dates: start: 20130625, end: 20130924
  4. ASPIRIN /00002701/ [Concomitant]
     Active Substance: ASPIRIN
     Indication: CARDIAC DISORDER
     Dosage: BAYER 325 MG DAILY
  5. LOSARTAN POTASSIUM. [Concomitant]
     Active Substance: LOSARTAN POTASSIUM
     Dosage: 1 DF, 1X/DAY
     Dates: start: 20110511, end: 20110628
  6. VITAMIN D /00107901/ [Concomitant]
     Active Substance: ERGOCALCIFEROL
     Dosage: 1 DF EVERY TWO WEEKS
     Dates: start: 20130925
  7. VITAMIN D /00107901/ [Concomitant]
     Active Substance: ERGOCALCIFEROL
     Dosage: UNK
  8. METOPROLOL TARTRATE. [Suspect]
     Active Substance: METOPROLOL TARTRATE
     Dosage: UNK
     Route: 048
  9. SYMBICORT [Suspect]
     Active Substance: BUDESONIDE\FORMOTEROL FUMARATE DIHYDRATE
     Dosage: BUDESONIDE: 160 UG/FORMOTEROL FUMARATE DEHYDRATE: 4.5 UG, DAILY
     Route: 055
     Dates: end: 20111205
  10. LEVOTHYROXINE. [Concomitant]
     Active Substance: LEVOTHYROXINE
     Indication: THYROID DISORDER
     Dosage: UNK
     Dates: start: 20111023
  11. ASPIRIN /00002701/ [Concomitant]
     Active Substance: ASPIRIN
     Dosage: 81 MG, 1X/DAY
  12. VITAMIN D /00107901/ [Concomitant]
     Active Substance: ERGOCALCIFEROL
     Dosage: 1 DF, WEEKLY
  13. VITAMIN D /00107901/ [Concomitant]
     Active Substance: ERGOCALCIFEROL
     Dosage: 2 DF, WEEKLY
     Dates: end: 20121219
  14. VITAMIN D /00107901/ [Concomitant]
     Active Substance: ERGOCALCIFEROL
     Dosage: 1.25 MG, WEEKLY
  15. LISINOPRIL. [Suspect]
     Active Substance: LISINOPRIL
     Indication: BLOOD PRESSURE ABNORMAL
     Dosage: 1 DF, 1X/DAY
     Route: 048
     Dates: end: 20100304
  16. TRICOR [Concomitant]
     Active Substance: FENOFIBRATE
     Indication: BLOOD CHOLESTEROL ABNORMAL
     Dosage: 160 MG, 1X/DAY
  17. NEURONTIN [Concomitant]
     Active Substance: GABAPENTIN
     Indication: NEUROPATHY PERIPHERAL
     Dosage: 3 DF, 1X/DAY
  18. HUMALOG MIX [Concomitant]
     Active Substance: INSULIN LISPRO
     Indication: DIABETES MELLITUS
     Dosage: 75/25, 50/40 2 DAILY
     Dates: end: 20101214
  19. HUMALOG MIX [Concomitant]
     Active Substance: INSULIN LISPRO
     Dosage: 30/25
     Dates: start: 20130925, end: 20131007
  20. HUMALOG MIX [Concomitant]
     Active Substance: INSULIN LISPRO
     Dosage: 35/30
     Dates: start: 20131008, end: 20140109
  21. ALBUTEROL SULFATE. [Concomitant]
     Active Substance: ALBUTEROL SULFATE
     Dosage: AS NEEDED
     Route: 055
  22. PACERONE [Concomitant]
     Active Substance: AMIODARONE HYDROCHLORIDE
     Dosage: 200 MG, 1X/DAY
  23. ATENOLOL. [Suspect]
     Active Substance: ATENOLOL
     Indication: BLOOD PRESSURE ABNORMAL
     Dosage: 500 MG, 1X/DAY
     Route: 048
     Dates: end: 20110628
  24. SYMBICORT [Suspect]
     Active Substance: BUDESONIDE\FORMOTEROL FUMARATE DIHYDRATE
     Dosage: BUDESONIDE: 160 UG/FORMOTEROL FUMARATE DEHYDRATE: 4.5 UG, TWO PUFFS TWO TIMES A DAY
     Route: 055
     Dates: start: 20111206, end: 20111206
  25. LISINOPRIL. [Suspect]
     Active Substance: LISINOPRIL
     Dosage: 5 MG, 1X/DAY
     Route: 048
     Dates: start: 20101203, end: 20110401
  26. LEVOTHYROXINE. [Concomitant]
     Active Substance: LEVOTHYROXINE
     Dosage: 1 DF DAILY AND 2 ON SUNDAY
     Dates: start: 20121220
  27. HUMALOG MIX [Concomitant]
     Active Substance: INSULIN LISPRO
     Dosage: 30/25
     Dates: start: 20101215, end: 20101226
  28. HUMALOG MIX [Concomitant]
     Active Substance: INSULIN LISPRO
     Dosage: 20/15
     Dates: start: 20101227, end: 20130625
  29. LOSARTAN POTASSIUM. [Concomitant]
     Active Substance: LOSARTAN POTASSIUM
     Dosage: 1 DF, 1X/DAY
  30. LEVOTHYROXINE. [Concomitant]
     Active Substance: LEVOTHYROXINE
     Dosage: UNK
     Dates: start: 20130625
  31. PAXIL [Concomitant]
     Active Substance: PAROXETINE HYDROCHLORIDE
     Dosage: 40 MG, 1X/DAY
  32. PRILOSEC [Suspect]
     Active Substance: OMEPRAZOLE MAGNESIUM
     Indication: GASTROOESOPHAGEAL REFLUX DISEASE
     Dosage: 40 MG, 1X/DAY
     Route: 048
  33. LISINOPRIL. [Suspect]
     Active Substance: LISINOPRIL
     Dosage: 2.5 MG, 1X/DAY
     Route: 048
     Dates: start: 20100912, end: 20101202
  34. NEURONTIN [Concomitant]
     Active Substance: GABAPENTIN
     Dosage: 1 DAY AND 1 NIGHT
     Dates: start: 20110511
  35. HUMALOG MIX [Concomitant]
     Active Substance: INSULIN LISPRO
     Dosage: 40/40
     Dates: start: 20140602, end: 20150114
  36. FOLIC ACID. [Concomitant]
     Active Substance: FOLIC ACID
     Dosage: 1 MG, 1X/DAY
  37. PACERONE [Concomitant]
     Active Substance: AMIODARONE HYDROCHLORIDE
     Dosage: 200 MG, ALTERNATE DAY
     Dates: start: 20140912
  38. ATAVAN [Concomitant]
     Indication: ANXIETY
     Dosage: UNK
  39. LISINOPRIL. [Suspect]
     Active Substance: LISINOPRIL
     Dosage: 5 MG, 1X/DAY
     Route: 048
     Dates: start: 20150628
  40. HUMALOG MIX [Concomitant]
     Active Substance: INSULIN LISPRO
     Dosage: 40/35
     Dates: start: 20140110, end: 20140601
  41. HUMALOG MIX [Concomitant]
     Active Substance: INSULIN LISPRO
     Dosage: 50/50
     Dates: start: 20150115
  42. VITAMIN D /00107901/ [Concomitant]
     Active Substance: ERGOCALCIFEROL
     Dosage: 1 DF, WEEKLY
     Dates: start: 20121220, end: 20130924
  43. VITAMIN B COMPLEX [Concomitant]
     Active Substance: CYANOCOBALAMIN\DEXPANTHENOL\NIACINAMIDE\PYRIDOXINE HYDROCHLORIDE\RIBOFLAVIN 5^-PHOSPHATE SODIUM\THIAMINE HYDROCHLORIDE\VITAMIN B COMPLEX
     Indication: METABOLIC DISORDER
     Dosage: 1 DF, 1X/DAY
     Dates: start: 20110511
  44. INDOMETHACIN /00003801/ [Concomitant]
     Active Substance: INDOMETHACIN
     Indication: HEADACHE
     Dosage: 50 MG DAILY OR AS REQUIRED
     Dates: start: 20140413
  45. LIPITOR [Concomitant]
     Active Substance: ATORVASTATIN CALCIUM
     Dosage: 40 MG, 1X/DAY

REACTIONS (11)
  - Hypersensitivity [Not Recovered/Not Resolved]
  - Rhinorrhoea [Not Recovered/Not Resolved]
  - Myocardial infarction [Unknown]
  - Deafness [Unknown]
  - Eye disorder [Unknown]
  - Neuropathy peripheral [Not Recovered/Not Resolved]
  - Asthma [Unknown]
  - Thrombosis [Unknown]
  - Phlebitis [Unknown]
  - Cataract [Unknown]
  - Renal impairment [Recovering/Resolving]

NARRATIVE: CASE EVENT DATE: 20110505
